FAERS Safety Report 9300394 (Version 2)
Quarter: 2013Q2

REPORT INFORMATION
  Report Type: Spontaneous
  Country: SK (occurrence: SK)
  Receive Date: 20130521
  Receipt Date: 20130527
  Transmission Date: 20140414
  Serious: Yes (Death, Hospitalization, Other)
  Sender: FDA-Public Use
  Company Number: SK-PFIZER INC-2013153563

PATIENT
  Age: 58 Year
  Sex: Male

DRUGS (3)
  1. SUNITINIB MALATE [Suspect]
     Indication: METASTATIC RENAL CELL CARCINOMA
     Dosage: 50 MG, ONCE A DAY AFTER LUNCH, 4 WEEKS THERAPY, FOLLOWING 2 WEEKS OFF
     Route: 048
     Dates: start: 20081212, end: 201110
  2. COSTI [Concomitant]
     Dosage: AS NEEDED
  3. NOLPAZA [Concomitant]
     Dosage: AS NEEDED

REACTIONS (18)
  - Acute myocardial infarction [Fatal]
  - Cardiac arrest [Unknown]
  - Convulsion [Unknown]
  - Loss of consciousness [Unknown]
  - Ageusia [Unknown]
  - Decreased appetite [Unknown]
  - Dyspepsia [Unknown]
  - Weight decreased [Unknown]
  - Oral candidiasis [Unknown]
  - Feeling cold [Unknown]
  - Back pain [Unknown]
  - Hypotension [Unknown]
  - Muscle spasms [Unknown]
  - Wheezing [Unknown]
  - Breath sounds abnormal [Unknown]
  - Disease progression [Unknown]
  - Metastatic renal cell carcinoma [Unknown]
  - Bradycardia [Unknown]
